FAERS Safety Report 5191164-3 (Version None)
Quarter: 2006Q4

REPORT INFORMATION
  Report Type: 
  Country: None (occurrence: None)
  Receive Date: 20061220
  Receipt Date: 20061220
  Transmission Date: 20070319
  Serious: Yes (Life-Threatening, Hospitalization)
  Sender: FDA-Public Use
  Company Number: None

PATIENT
  Age: 48 Year
  Sex: Female
  Weight: 84.369 kg

DRUGS (5)
  1. MORPHINE [Suspect]
     Indication: PROCEDURAL PAIN
     Dosage: 30 MG IV PACU ;+ 23 MG PCA
     Route: 042
     Dates: start: 20060724
  2. HYDROXYZINE [Suspect]
     Indication: PROCEDURAL PAIN
     Dosage: 50 MG IM
     Route: 030
     Dates: start: 20060724
  3. EFFEXOR [Concomitant]
  4. XANAX [Concomitant]
  5. CEPHADYN [Concomitant]

REACTIONS (5)
  - LOSS OF CONSCIOUSNESS [None]
  - OXYGEN SATURATION DECREASED [None]
  - RESPIRATORY RATE DECREASED [None]
  - RESUSCITATION [None]
  - SOMNOLENCE [None]
